FAERS Safety Report 4302726-7 (Version None)
Quarter: 2004Q1

REPORT INFORMATION
  Report Type: 
  Country: None (occurrence: None)
  Receive Date: 20040224
  Receipt Date: 20030509
  Transmission Date: 20041129
  Serious: Yes (Death, Life-Threatening)
  Sender: FDA-Public Use
  Company Number: PHBS2003JP04818

PATIENT
  Age: 57 Year
  Sex: Male
  Weight: 54 kg

DRUGS (1)
  1. GLEEVEC [Suspect]
     Indication: GASTROINTESTINAL STROMAL TUMOUR
     Dosage: 400 MG, QD
     Route: 048
     Dates: start: 20030319, end: 20030429

REACTIONS (8)
  - ANAEMIA [None]
  - ENTEROCUTANEOUS FISTULA [None]
  - GASTROINTESTINAL STROMAL TUMOUR [None]
  - INTRA-ABDOMINAL HAEMORRHAGE [None]
  - NEOPLASM RECURRENCE [None]
  - PERITONITIS [None]
  - POSTOPERATIVE INFECTION [None]
  - SMALL INTESTINAL PERFORATION [None]
